FAERS Safety Report 25883059 (Version 1)
Quarter: 2025Q4

REPORT INFORMATION
  Report Type: Report from Study
  Country: US (occurrence: US)
  Receive Date: 20251006
  Receipt Date: 20251006
  Transmission Date: 20260118
  Serious: Yes (Other)
  Sender: GILEAD
  Company Number: US-GILEAD-2025-0731032

PATIENT
  Sex: Male

DRUGS (17)
  1. AZTREONAM LYSINE [Suspect]
     Active Substance: AZTREONAM LYSINE
     Indication: Cystic fibrosis
     Dosage: INHALE 75 MG VIA ALTERA NEBULIZER THREE TIMES DAILY FOR 28 DAYS
     Route: 055
  2. HUMALOG [Concomitant]
     Active Substance: INSULIN LISPRO
  3. CREON [Concomitant]
     Active Substance: PANCRELIPASE AMYLASE\PANCRELIPASE LIPASE\PANCRELIPASE PROTEASE
  4. LORAZEPAM [Concomitant]
     Active Substance: LORAZEPAM
  5. MOMETASONE FUROATE [Concomitant]
     Active Substance: MOMETASONE FUROATE
  6. ALBUTEROL SULFATE [Concomitant]
     Active Substance: ALBUTEROL SULFATE
  7. SODIUM CHLORIDE [Concomitant]
     Active Substance: SODIUM CHLORIDE
  8. AZITHROMYCIN [Concomitant]
     Active Substance: AZITHROMYCIN
  9. COLISTIMETHATE [Concomitant]
     Active Substance: COLISTIMETHATE SODIUM
     Dosage: 150 MG TWICE A DAY FOR 28 DAYS AS DIRECTED
     Route: 055
  10. TOBI [Concomitant]
     Active Substance: TOBRAMYCIN
     Dosage: 300 MG TWICE DAILY FOR 28 DAYS
     Route: 055
  11. PULMOZYME [Concomitant]
     Active Substance: DORNASE ALFA
  12. MVW ADEK GUMMIES [Concomitant]
  13. LEFLUNOMIDE [Concomitant]
     Active Substance: LEFLUNOMIDE
  14. LISINOPRIL [Concomitant]
     Active Substance: LISINOPRIL
  15. OXYGEN [Concomitant]
     Active Substance: OXYGEN
  16. TRIKAFTA [Concomitant]
     Active Substance: ELEXACAFTOR\IVACAFTOR\TEZACAFTOR
  17. ZINC [Concomitant]
     Active Substance: ZINC

REACTIONS (2)
  - Cystic fibrosis [Unknown]
  - Infection [Unknown]
